FAERS Safety Report 6193610-5 (Version None)
Quarter: 2009Q2

REPORT INFORMATION
  Report Type: 
  Country: None (occurrence: None)
  Receive Date: 20090513
  Receipt Date: 20090430
  Transmission Date: 20091009
  Serious: Yes (Hospitalization, Other)
  Sender: FDA-Public Use
  Company Number: CHPA2009US10997

PATIENT
  Age: 50 Year
  Sex: Female

DRUGS (7)
  1. CALCIUM CARBONATE (NCH) (CALCIUM CARBONATE) UNKNOWN [Suspect]
     Dosage: 1200 MG
  2. ADEKS (VITAMINS NOS, ZINC) [Concomitant]
  3. LACTULOSE [Concomitant]
  4. FERROUS SULFATE TAB [Concomitant]
  5. SPIRONOLACTONE [Concomitant]
  6. FUROSEMIDE [Concomitant]
  7. RISEDRONATE SODIUM [Concomitant]

REACTIONS (25)
  - ASTERIXIS [None]
  - BLOOD ALKALINE PHOSPHATASE INCREASED [None]
  - BLOOD CREATININE INCREASED [None]
  - BLOOD GLUCOSE INCREASED [None]
  - BLOOD PARATHYROID HORMONE DECREASED [None]
  - BLOOD PRESSURE DIASTOLIC DECREASED [None]
  - BLOOD UREA INCREASED [None]
  - CONFUSIONAL STATE [None]
  - DISORIENTATION [None]
  - DIZZINESS [None]
  - FALL [None]
  - GASTROINTESTINAL HAEMORRHAGE [None]
  - HEPATIC ENCEPHALOPATHY [None]
  - HYPERCALCAEMIA [None]
  - HYPOMAGNESAEMIA [None]
  - JAUNDICE [None]
  - METABOLIC ALKALOSIS [None]
  - MILK-ALKALI SYNDROME [None]
  - MUCOSAL DRYNESS [None]
  - PNEUMONIA [None]
  - RENAL FAILURE ACUTE [None]
  - RESPIRATORY FAILURE [None]
  - SOMNOLENCE [None]
  - TACHYPNOEA [None]
  - VOMITING [None]
